FAERS Safety Report 5030971-4 (Version None)
Quarter: 2006Q2

REPORT INFORMATION
  Report Type: 
  Country: None (occurrence: None)
  Receive Date: 20060621
  Receipt Date: 20050829
  Transmission Date: 20061013
  Serious: No
  Sender: FDA-Public Use
  Company Number: US-GLAXOSMITHKLINE-A0572223A

PATIENT
  Age: 55 Year
  Sex: Female

DRUGS (3)
  1. FLOVENT [Suspect]
     Indication: ASTHMA
     Dosage: 110MCG PER DAY
     Route: 055
     Dates: start: 20050301
  2. BECLOVENT [Suspect]
     Indication: DRUG USE FOR UNKNOWN INDICATION
     Route: 055
  3. CARDIZEM [Concomitant]
     Route: 065

REACTIONS (2)
  - JOINT STIFFNESS [None]
  - MUSCULOSKELETAL PAIN [None]
